FAERS Safety Report 8903169 (Version 1)
Quarter: 2012Q4

REPORT INFORMATION
  Report Type: 
  Country: NL (occurrence: NL)
  Receive Date: 20121112
  Receipt Date: 20121112
  Transmission Date: 20130627
  Serious: Yes (Other)
  Sender: FDA-Public Use
  Company Number: NL-ELI_LILLY_AND_COMPANY-NL201210010171

PATIENT
  Age: 47 Year
  Sex: Male

DRUGS (2)
  1. ZYPADHERA [Suspect]
     Indication: SCHIZOPHRENIA
     Dosage: 210 mg, 2/M
     Dates: start: 201206
  2. ZYPADHERA [Suspect]
     Dosage: 405 mg, 2/M
     Dates: start: 20121010

REACTIONS (6)
  - Unresponsive to stimuli [Recovered/Resolved]
  - Delirium [Recovered/Resolved]
  - Aggression [Recovered/Resolved]
  - Confusional state [Recovered/Resolved]
  - Injection site pain [Unknown]
  - Overdose [Unknown]
